FAERS Safety Report 18981599 (Version 1)
Quarter: 2021Q1

REPORT INFORMATION
  Report Type: Spontaneous
  Country: US (occurrence: US)
  Receive Date: 20210308
  Receipt Date: 20210308
  Transmission Date: 20210420
  Serious: No
  Sender: FDA-Public Use
  Company Number: None

PATIENT
  Age: 63 Year
  Sex: Female
  Weight: 72.9 kg

DRUGS (9)
  1. IBRANCE [Suspect]
     Active Substance: PALBOCICLIB
     Indication: BREAST CANCER
     Route: 048
     Dates: start: 20200110, end: 20210308
  2. CALCIUM + D3 [Concomitant]
     Active Substance: CALCIUM\CHOLECALCIFEROL
  3. XGEVA [Concomitant]
     Active Substance: DENOSUMAB
  4. TELMISARTAN. [Concomitant]
     Active Substance: TELMISARTAN
  5. ZETIA [Concomitant]
     Active Substance: EZETIMIBE
  6. CRESTOR [Concomitant]
     Active Substance: ROSUVASTATIN CALCIUM
  7. MULTI VITAMIN DAILY [Concomitant]
  8. ASPIRIN 81 [Concomitant]
     Active Substance: ASPIRIN
  9. FISH OIL DOUBLE STRENGTH [Concomitant]

REACTIONS (1)
  - Disease progression [None]

NARRATIVE: CASE EVENT DATE: 20210308
